FAERS Safety Report 11737568 (Version 1)
Quarter: 2015Q4

REPORT INFORMATION
  Report Type: Report from Study
  Country: KR (occurrence: KR)
  Receive Date: 20151113
  Receipt Date: 20151113
  Transmission Date: 20160304
  Serious: Yes (Hospitalization)
  Sender: FDA-Public Use
  Company Number: KR-TEVA-530598ISR

PATIENT
  Age: 49 Year
  Sex: Female
  Weight: 73.8 kg

DRUGS (37)
  1. KYNEX 0.1% [Concomitant]
     Indication: XEROPHTHALMIA
     Dates: start: 20140607, end: 20140815
  2. EPIDUO [Concomitant]
     Active Substance: ADAPALENE\BENZOYL PEROXIDE
     Indication: DERMATITIS ACNEIFORM
     Route: 061
     Dates: start: 20140822, end: 20140829
  3. NESINA [Concomitant]
     Active Substance: ALOGLIPTIN BENZOATE
     Indication: DIABETES MELLITUS
     Dosage: 25 MILLIGRAM DAILY;
     Route: 048
     Dates: start: 20140915
  4. GLUCOPHAGE [Concomitant]
     Active Substance: METFORMIN HYDROCHLORIDE
     Indication: DIABETES MELLITUS
     Dosage: 500 MILLIGRAM DAILY;
     Route: 048
     Dates: start: 20140702, end: 20140702
  5. HEPARIN [Concomitant]
     Active Substance: HEPARIN SODIUM
     Indication: CENTRAL VENOUS CATHETERISATION
     Dosage: 25000 IU (INTERNATIONAL UNIT) DAILY;
     Route: 040
     Dates: start: 20140710, end: 20140710
  6. GABAPENTIN. [Concomitant]
     Active Substance: GABAPENTIN
     Indication: PERIPHERAL SENSORY NEUROPATHY
     Dosage: 900 MILLIGRAM DAILY;
     Route: 048
     Dates: start: 20140725, end: 20140807
  7. NEUTROGIN [Concomitant]
     Active Substance: LENOGRASTIM
     Dosage: 250 MICROGRAM DAILY;
     Route: 058
     Dates: start: 20141120, end: 20141123
  8. EMEND [Concomitant]
     Active Substance: APREPITANT
     Route: 048
     Dates: start: 20141111, end: 20150115
  9. EMEND [Concomitant]
     Active Substance: APREPITANT
     Dosage: 80 MILLIGRAM DAILY;
     Route: 048
     Dates: start: 20141112, end: 20141113
  10. LANSTON [Concomitant]
     Active Substance: LANSOPRAZOLE
     Indication: GASTRIC ULCER
     Dosage: 30 MILLIGRAM DAILY;
     Route: 048
     Dates: start: 20140609, end: 20140720
  11. ZANTAC [Concomitant]
     Active Substance: RANITIDINE HYDROCHLORIDE
     Indication: PREMEDICATION
     Dosage: EVERY PACLITAXEL (50MG)
     Dates: start: 20140718, end: 20141024
  12. TYLENOL [Concomitant]
     Active Substance: ACETAMINOPHEN
     Indication: MYALGIA
     Dosage: 1815 MILLIGRAM DAILY;
     Route: 048
     Dates: start: 20140725, end: 20140807
  13. TEPRENONE [Concomitant]
     Active Substance: TEPRENONE
     Indication: GASTRIC ULCER
     Dosage: 150 MILLIGRAM DAILY;
     Route: 048
     Dates: start: 20140725
  14. CYCLOPHOSPHAMIDE (OPEN LABEL) [Suspect]
     Active Substance: CYCLOPHOSPHAMIDE
     Indication: BREAST CANCER
     Dosage: 1092 MILLIGRAM DAILY;
     Route: 041
     Dates: start: 20141111, end: 20141111
  15. ABT-888 (VELIPARIB) [Suspect]
     Active Substance: VELIPARIB
     Indication: BREAST CANCER
     Dosage: BLINDED
     Route: 048
     Dates: start: 20140718, end: 20141106
  16. GABAPENTIN. [Concomitant]
     Active Substance: GABAPENTIN
     Dosage: 900 MILLIGRAM DAILY;
     Route: 048
     Dates: start: 20140912, end: 20141112
  17. GLUCOPHAGE XR [Concomitant]
     Active Substance: METFORMIN HYDROCHLORIDE
     Indication: DIABETES MELLITUS
     Dosage: 1000 MILLIGRAM DAILY;
     Route: 048
     Dates: start: 20140915
  18. NEUTROGIN [Concomitant]
     Active Substance: LENOGRASTIM
     Indication: NEUTROPHIL COUNT DECREASED
     Dosage: 250 MICROGRAM DAILY;
     Route: 058
     Dates: start: 20141022, end: 20141022
  19. LAMINE-G [Concomitant]
     Indication: GASTRIC ULCER
     Dosage: 60 ML DAILY;
     Route: 048
     Dates: start: 20140609, end: 20140720
  20. GANATON [Concomitant]
     Active Substance: ITOPRIDE
     Indication: PROPHYLAXIS
     Route: 048
     Dates: start: 20140822, end: 20140828
  21. GANATON [Concomitant]
     Active Substance: ITOPRIDE
     Dosage: 150 MILLIGRAM DAILY;
     Route: 048
     Dates: start: 20141022
  22. DEXAMETHASONE. [Concomitant]
     Active Substance: DEXAMETHASONE
     Indication: PROPHYLAXIS OF NAUSEA AND VOMITING
     Dosage: 24 MILLIGRAM DAILY;
     Route: 048
     Dates: start: 20140912, end: 20140912
  23. DEXAMETHASONE. [Concomitant]
     Active Substance: DEXAMETHASONE
     Dosage: EVERY CHEMOTHERAPY
     Route: 042
     Dates: start: 20140718, end: 20150115
  24. LEGALON [Concomitant]
     Active Substance: MILK THISTLE
     Indication: ASPARTATE AMINOTRANSFERASE INCREASED
     Dosage: 420 MILLIGRAM DAILY;
     Route: 048
     Dates: start: 20141111, end: 20141222
  25. CHLORPHENIRAMINE. [Concomitant]
     Active Substance: CHLORPHENIRAMINE
     Indication: PREMEDICATION
     Dosage: EVERY PACLITAXEL (4MG)
     Route: 042
     Dates: start: 20140718, end: 20141024
  26. PACLITAXEL (OPEN LABEL) [Suspect]
     Active Substance: PACLITAXEL
     Indication: BREAST CANCER
     Route: 042
     Dates: start: 20140718, end: 20141024
  27. GLUCOPHAGE [Concomitant]
     Active Substance: METFORMIN HYDROCHLORIDE
     Route: 048
     Dates: start: 20140703, end: 20140914
  28. PANTOLOC [Concomitant]
     Active Substance: PANTOPRAZOLE SODIUM
     Indication: GASTRIC ULCER
     Dosage: 20 MILLIGRAM DAILY;
     Route: 048
     Dates: start: 20140725
  29. UCERAX [Concomitant]
     Indication: DERMATITIS ACNEIFORM
     Dosage: 75 MILLIGRAM DAILY;
     Route: 048
     Dates: start: 20140822, end: 20140829
  30. DEXAMETHASONE. [Concomitant]
     Active Substance: DEXAMETHASONE
     Indication: PREMEDICATION
     Dosage: 8 MILLIGRAM DAILY;
     Route: 048
     Dates: start: 20141112, end: 20141114
  31. CARBOPLATIN (OPEN LABEL) [Suspect]
     Active Substance: CARBOPLATIN
     Indication: BREAST CANCER
     Route: 042
     Dates: start: 20140718, end: 20141013
  32. LIDOCAINE. [Concomitant]
     Active Substance: LIDOCAINE
     Indication: CENTRAL VENOUS CATHETERISATION
     Dosage: 400 MILLIGRAM DAILY;
     Route: 058
     Dates: start: 20140710, end: 20140710
  33. ALOXI [Concomitant]
     Active Substance: PALONOSETRON HYDROCHLORIDE
     Indication: PREMEDICATION
     Route: 042
     Dates: start: 20140718, end: 20150115
  34. LASIX [Concomitant]
     Active Substance: FUROSEMIDE
     Indication: PROPHYLAXIS
     Route: 042
     Dates: start: 20140718, end: 20141013
  35. DOXORUBICIN NOS (OPEN LABEL) [Suspect]
     Active Substance: DOXORUBICIN
     Indication: TRIPLE NEGATIVE BREAST CANCER
     Dosage: 109 MILLIGRAM DAILY;
     Route: 040
     Dates: start: 20141111, end: 20141111
  36. PRTHIDINE [Concomitant]
     Indication: CENTRAL VENOUS CATHETERISATION
     Dosage: 50 MILLIGRAM DAILY;
     Route: 058
     Dates: start: 20140710, end: 20140710
  37. EMEND [Concomitant]
     Active Substance: APREPITANT
     Dosage: 80 MILLIGRAM DAILY;
     Route: 048
     Dates: start: 20141203, end: 20141204

REACTIONS (3)
  - Myalgia [Unknown]
  - Pyrexia [Recovered/Resolved]
  - Neutropenia [Recovered/Resolved]

NARRATIVE: CASE EVENT DATE: 20141120
